FAERS Safety Report 9607703 (Version 1)
Quarter: 2013Q4

REPORT INFORMATION
  Report Type: Spontaneous
  Country: FR (occurrence: FR)
  Receive Date: 20131009
  Receipt Date: 20131009
  Transmission Date: 20140711
  Serious: Yes (Hospitalization)
  Sender: FDA-Public Use
  Company Number: FR-JNJFOC-20131002234

PATIENT
  Age: 70 Year
  Sex: Male

DRUGS (5)
  1. REMICADE [Suspect]
     Indication: PSORIASIS
     Dosage: THIRD INFUSION
     Route: 042
     Dates: start: 20120413
  2. REMICADE [Suspect]
     Indication: PSORIASIS
     Dosage: EIGHTH INFUSION
     Route: 042
     Dates: start: 20130213
  3. REMICADE [Suspect]
     Indication: PSORIASIS
     Dosage: ELEVENTH INFUSION
     Route: 042
     Dates: start: 20130814
  4. REMICADE [Suspect]
     Indication: PSORIASIS
     Dosage: SECOND INFUSION
     Route: 042
     Dates: start: 20120316
  5. REMICADE [Suspect]
     Indication: PSORIASIS
     Dosage: FIRST INFUSION
     Route: 042
     Dates: start: 20120301

REACTIONS (1)
  - Basal cell carcinoma [Unknown]
